FAERS Safety Report 7158014-7 (Version None)
Quarter: 2010Q4

REPORT INFORMATION
  Report Type: 
  Country: None (occurrence: None)
  Receive Date: 20101214
  Receipt Date: 20100415
  Transmission Date: 20110411
  Serious: No
  Sender: FDA-Public Use
  Company Number: US-ASTRAZENECA-2010SE16791

PATIENT
  Age: 65 Year
  Sex: Female

DRUGS (4)
  1. CRESTOR [Suspect]
     Indication: BLOOD CHOLESTEROL INCREASED
     Route: 048
     Dates: start: 20100320, end: 20100327
  2. CALCIUM [Concomitant]
  3. CO-Q-10 [Concomitant]
  4. VITAMIN D [Concomitant]

REACTIONS (7)
  - CHILLS [None]
  - FATIGUE [None]
  - HEADACHE [None]
  - HIGH DENSITY LIPOPROTEIN DECREASED [None]
  - MYALGIA [None]
  - PROTEIN URINE [None]
  - PYREXIA [None]
